FAERS Safety Report 8742944 (Version 4)
Quarter: 2012Q4

REPORT INFORMATION
  Report Type: 
  Country: CA (occurrence: CA)
  Receive Date: 20120824
  Receipt Date: 20121002
  Transmission Date: 20130627
  Serious: Yes (Other)
  Sender: FDA-Public Use
  Company Number: PHHY2011CA099071

PATIENT
  Age: 51 Year
  Sex: Female

DRUGS (1)
  1. GILENYA [Suspect]
     Indication: RELAPSING-REMITTING MULTIPLE SCLEROSIS
     Dosage: 0.5 mg, QD
     Route: 048
     Dates: start: 20110817

REACTIONS (8)
  - Fall [Unknown]
  - Lower limb fracture [Unknown]
  - Fibula fracture [Unknown]
  - Joint injury [Unknown]
  - VIIth nerve paralysis [Unknown]
  - Dysgeusia [Unknown]
  - Parosmia [Unknown]
  - Back pain [Recovered/Resolved]
